FAERS Safety Report 11636827 (Version 1)
Quarter: 2015Q4

REPORT INFORMATION
  Report Type: Spontaneous
  Country: US (occurrence: US)
  Receive Date: 20151016
  Receipt Date: 20151016
  Transmission Date: 20160304
  Serious: No
  Sender: FDA-Public Use
  Company Number: US-GALDERMA-US15005998

PATIENT
  Age: 41 Year
  Sex: Female

DRUGS (3)
  1. MIRVASO [Concomitant]
     Active Substance: BRIMONIDINE TARTRATE
     Indication: ROSACEA
     Dosage: 0.33%
     Route: 061
     Dates: start: 201407, end: 201507
  2. IVERMECTIN. [Concomitant]
     Active Substance: IVERMECTIN
     Dosage: 9 MG
     Route: 048
     Dates: start: 201505, end: 20150706
  3. SOOLANTRA [Suspect]
     Active Substance: IVERMECTIN
     Indication: ROSACEA
     Dosage: 1%
     Route: 061
     Dates: start: 201504, end: 201504

REACTIONS (5)
  - Dry skin [Unknown]
  - Skin hypopigmentation [Not Recovered/Not Resolved]
  - Skin irritation [Unknown]
  - Erythema [Unknown]
  - Skin exfoliation [Unknown]

NARRATIVE: CASE EVENT DATE: 201504
